FAERS Safety Report 12711885 (Version 1)
Quarter: 2016Q3

REPORT INFORMATION
  Report Type: Spontaneous
  Country: BR (occurrence: BR)
  Receive Date: 20160902
  Receipt Date: 20160902
  Transmission Date: 20161109
  Serious: Yes (Hospitalization, Other)
  Sender: FDA-Public Use
  Company Number: BR-AMGEN-BRASP2016113785

PATIENT
  Age: 33 Year
  Sex: Male
  Weight: 30 kg

DRUGS (4)
  1. ALLOPURINOL. [Concomitant]
     Active Substance: ALLOPURINOL
     Indication: BLOOD URIC ACID INCREASED
     Dosage: UNK
  2. PROTOVIT [Concomitant]
     Indication: MEDICAL DIET
     Dosage: UNK
  3. FILGRASTIM [Suspect]
     Active Substance: FILGRASTIM
     Indication: NEUTROPENIA
     Dosage: UNK
     Route: 065
     Dates: start: 2016
  4. NEUPOGEN [Suspect]
     Active Substance: FILGRASTIM
     Indication: NEUTROPENIA
     Dosage: UNK, QOD [15 FLASKS PER MONTH]
     Route: 065
     Dates: end: 201607

REACTIONS (11)
  - Nausea [Unknown]
  - Pain [Unknown]
  - Vomiting [Unknown]
  - General physical health deterioration [Not Recovered/Not Resolved]
  - Infection susceptibility increased [Not Recovered/Not Resolved]
  - Renal impairment [Unknown]
  - Hypoglycaemia [Unknown]
  - Stomatitis [Unknown]
  - Off label use [Unknown]
  - Infection [Unknown]
  - Chest pain [Unknown]

NARRATIVE: CASE EVENT DATE: 2016
